FAERS Safety Report 17883433 (Version 1)
Quarter: 2020Q2

REPORT INFORMATION
  Report Type: Spontaneous
  Country: US (occurrence: US)
  Receive Date: 20200611
  Receipt Date: 20200611
  Transmission Date: 20200714
  Serious: Yes (Other)
  Sender: FDA-Public Use
  Company Number: US-ASTRAZENECA-2020SE73344

PATIENT
  Sex: Male

DRUGS (1)
  1. TAGRISSO [Suspect]
     Active Substance: OSIMERTINIB
     Dosage: TOOK IT FOR ALMOST TWO YEARS
     Route: 048

REACTIONS (3)
  - Spinal cord neoplasm [Unknown]
  - Neoplasm progression [Unknown]
  - Lung neoplasm [Unknown]
